FAERS Safety Report 18584106 (Version 2)
Quarter: 2020Q4

REPORT INFORMATION
  Report Type: Spontaneous
  Country: US (occurrence: US)
  Receive Date: 20201207
  Receipt Date: 20201228
  Transmission Date: 20210114
  Serious: No
  Sender: FDA-Public Use
  Company Number: US-ASTRAZENECA-2020SF62255

PATIENT
  Sex: Male

DRUGS (2)
  1. OTHER DIABETES MEDICATIONS [Concomitant]
  2. BYDUREON BCISE [Suspect]
     Active Substance: EXENATIDE
     Indication: DIABETES MELLITUS
     Route: 058
     Dates: start: 2018

REACTIONS (3)
  - Device leakage [Unknown]
  - Injection site pain [Recovered/Resolved]
  - Drug delivery system malfunction [Unknown]
